FAERS Safety Report 9632521 (Version 3)
Quarter: 2013Q4

REPORT INFORMATION
  Report Type: Spontaneous
  Country: US (occurrence: US)
  Receive Date: 20131018
  Receipt Date: 20131227
  Transmission Date: 20140711
  Serious: Yes (Other)
  Sender: FDA-Public Use
  Company Number: US-BAYER-2013-126520

PATIENT
  Age: 30 Year
  Sex: Female
  Weight: 65.76 kg

DRUGS (4)
  1. MIRENA [Suspect]
     Indication: CONTRACEPTION
     Dosage: 20 MCG/24HR, CONT
     Route: 015
     Dates: start: 20080205, end: 20121018
  2. IBUPROFEN [Concomitant]
     Dosage: 600 MG, UNK
     Route: 048
  3. AMLODIPINE [Concomitant]
     Dosage: 10 MG, QS
  4. IRON [Concomitant]
     Dosage: 1 TABLET
     Route: 048

REACTIONS (9)
  - Injury [None]
  - Uterine perforation [None]
  - Device misuse [None]
  - Device difficult to use [None]
  - Device difficult to use [None]
  - Pelvic pain [None]
  - Emotional distress [None]
  - Device difficult to use [None]
  - Vaginal haemorrhage [None]
